FAERS Safety Report 4552826-1 (Version None)
Quarter: 2005Q1

REPORT INFORMATION
  Report Type: 
  Country: None (occurrence: None)
  Receive Date: 20050114
  Receipt Date: 20050104
  Transmission Date: 20050727
  Serious: Yes (Other)
  Sender: FDA-Public Use
  Company Number: GB-ROCHE-391445

PATIENT
  Age: 58 Year
  Sex: Female
  Weight: 76 kg

DRUGS (3)
  1. ORLISTAT [Suspect]
     Indication: OBESITY
     Dosage: DURATION REPORTED AS 2.47 MONTHS
     Route: 048
     Dates: start: 20040925, end: 20041208
  2. ATORVASTATIN [Concomitant]
     Indication: HYPERCHOLESTEROLAEMIA
     Route: 048
     Dates: start: 20040115
  3. BENDROFLUAZIDE [Concomitant]
     Route: 048
     Dates: start: 20040115

REACTIONS (2)
  - DERMATITIS BULLOUS [None]
  - RESPIRATORY TRACT INFECTION [None]
